FAERS Safety Report 8825677 (Version 3)
Quarter: 2012Q4

REPORT INFORMATION
  Report Type: 
  Country: MX (occurrence: MX)
  Receive Date: 20121004
  Receipt Date: 20121129
  Transmission Date: 20130627
  Serious: Yes (Hospitalization)
  Sender: FDA-Public Use
  Company Number: MX-BAXTER-2012BAX018312

PATIENT
  Age: 19 Year
  Sex: Male
  Weight: 62 kg

DRUGS (6)
  1. DIANEAL FORMULA DOS CON DEXTROSA AL 1,5% SOLUCI?N PARA DI?LISIS PERITO [Suspect]
     Indication: PERITONEAL DIALYSIS
     Route: 033
  2. DIANEAL [Suspect]
     Indication: PERITONEAL DIALYSIS
     Route: 033
  3. CAPTOPRIL [Concomitant]
     Indication: DRUG USE FOR UNKNOWN INDICATION
     Route: 060
  4. METOCLOPRAMIDE [Concomitant]
     Indication: NAUSEA
     Route: 048
  5. METOCLOPRAMIDE [Concomitant]
     Indication: VOMITING
  6. ERYTHROPOIETIN [Concomitant]
     Indication: DRUG USE FOR UNKNOWN INDICATION
     Route: 065

REACTIONS (5)
  - Nausea [Recovered/Resolved]
  - Vomiting [Recovered/Resolved]
  - Hypertension [Recovered/Resolved]
  - Depression [Recovered/Resolved]
  - Device dislocation [None]
